FAERS Safety Report 23822803 (Version 1)
Quarter: 2024Q2

REPORT INFORMATION
  Report Type: Spontaneous
  Country: US (occurrence: US)
  Receive Date: 20240506
  Receipt Date: 20240506
  Transmission Date: 20240716
  Serious: No
  Sender: FDA-Public Use
  Company Number: US-ABBVIE-5743008

PATIENT
  Age: 54 Year
  Sex: Female

DRUGS (3)
  1. BOTOX [Suspect]
     Active Substance: ONABOTULINUMTOXINA
     Indication: Muscular weakness
     Dosage: TIME INTERVAL: AS NECESSARY
     Route: 030
     Dates: start: 202404, end: 202404
  2. BOTOX [Suspect]
     Active Substance: ONABOTULINUMTOXINA
     Indication: Muscular weakness
     Dosage: TIME INTERVAL: AS NECESSARY
     Route: 030
     Dates: start: 202404, end: 202404
  3. SYNTHROID [Concomitant]
     Active Substance: LEVOTHYROXINE SODIUM
     Indication: Hyperthyroidism

REACTIONS (2)
  - Muscular weakness [Unknown]
  - Joint range of motion decreased [Unknown]

NARRATIVE: CASE EVENT DATE: 20240401
